FAERS Safety Report 9737283 (Version 1)
Quarter: 2013Q4

REPORT INFORMATION
  Report Type: Spontaneous
  Country: US (occurrence: US)
  Receive Date: 20131206
  Receipt Date: 20131206
  Transmission Date: 20140711
  Serious: No
  Sender: FDA-Public Use
  Company Number: US-BIOGENIDEC-2013BI092791

PATIENT
  Age: 40 Year
  Sex: Male

DRUGS (11)
  1. TECFIDERA [Suspect]
     Indication: MULTIPLE SCLEROSIS
     Route: 048
     Dates: start: 201308
  2. LANTUS [Concomitant]
  3. HUMALOG [Concomitant]
  4. KEPPRA [Concomitant]
  5. AMANTADINE [Concomitant]
  6. LYRICA [Concomitant]
  7. PROPRANOLOL [Concomitant]
  8. VITAMIN D [Concomitant]
  9. VITAMIN C [Concomitant]
  10. CALCIUM+MAGNESIUM [Concomitant]
  11. GRAPE SEED EXTRACT [Concomitant]

REACTIONS (1)
  - Flushing [Recovered/Resolved]
